FAERS Safety Report 8513155-4 (Version None)
Quarter: 2012Q3

REPORT INFORMATION
  Report Type: 
  Country: None (occurrence: None)
  Receive Date: 20120716
  Receipt Date: 20120709
  Transmission Date: 20120928
  Serious: Yes (Other)
  Sender: FDA-Public Use
  Company Number: US-MILLENNIUM PHARMACEUTICALS, INC.-2012-04833

PATIENT
  Sex: Female
  Weight: 50.794 kg

DRUGS (5)
  1. VELCADE [Suspect]
     Indication: MULTIPLE MYELOMA
     Dosage: UNK
     Route: 042
     Dates: start: 20120501
  2. DEXAMETHASONE [Suspect]
     Indication: MULTIPLE MYELOMA
     Dosage: 40 MG, 1/WEEK
     Route: 048
     Dates: start: 20120606
  3. ZOMETA [Concomitant]
     Indication: PRODUCT USED FOR UNKNOWN INDICATION
     Dosage: UNK
  4. VELCADE [Suspect]
     Dosage: 0.1 MG, 1/WEEK
     Route: 042
     Dates: start: 20120605
  5. REVLIMID [Suspect]
     Indication: MULTIPLE MYELOMA
     Dosage: 25 MG, CYCLIC
     Route: 048
     Dates: start: 20120605

REACTIONS (5)
  - PNEUMONIA [None]
  - BLOOD MAGNESIUM DECREASED [None]
  - PLATELET COUNT DECREASED [None]
  - CLOSTRIDIAL INFECTION [None]
  - BLOOD CALCIUM DECREASED [None]
